FAERS Safety Report 23309512 (Version 3)
Quarter: 2024Q2

REPORT INFORMATION
  Report Type: Spontaneous
  Country: US (occurrence: US)
  Receive Date: 20231218
  Receipt Date: 20240416
  Transmission Date: 20240715
  Serious: Yes (Other)
  Sender: FDA-Public Use
  Company Number: US-PFIZER INC-PV202300198874

PATIENT
  Age: 76 Year
  Sex: Male

DRUGS (1)
  1. INLYTA [Suspect]
     Active Substance: AXITINIB
     Dosage: 5MG BID
     Dates: end: 202403

REACTIONS (7)
  - Hypothyroidism [Unknown]
  - Cardiac dysfunction [Unknown]
  - Weight decreased [Unknown]
  - Blood pressure increased [Unknown]
  - Constipation [Unknown]
  - Asthenia [Unknown]
  - Decreased appetite [Unknown]
